FAERS Safety Report 18425023 (Version 3)
Quarter: 2020Q4

REPORT INFORMATION
  Report Type: Other
  Country: CH (occurrence: CH)
  Receive Date: 20201026
  Receipt Date: 20201105
  Transmission Date: 20210114
  Serious: Yes (Other)
  Sender: FDA-Public Use
  Company Number: CH-ROCHE-2617451

PATIENT
  Age: 32 Year
  Sex: Female
  Weight: 30 kg

DRUGS (2)
  1. RISDIPLAM. [Suspect]
     Active Substance: RISDIPLAM
     Indication: SPINAL MUSCULAR ATROPHY
     Route: 048
     Dates: start: 20200512
  2. VANCOMYCIN [Concomitant]
     Active Substance: VANCOMYCIN
     Indication: BACTERAEMIA
     Route: 042
     Dates: start: 20200612

REACTIONS (10)
  - Vulvovaginal pruritus [Recovered/Resolved]
  - Nausea [Unknown]
  - Throat irritation [Unknown]
  - Pyrexia [Not Recovered/Not Resolved]
  - C-reactive protein increased [Not Recovered/Not Resolved]
  - Vulvovaginal dryness [Recovered/Resolved]
  - Vulvovaginal burning sensation [Recovered/Resolved]
  - Menstrual disorder [Recovering/Resolving]
  - Fatigue [Not Recovered/Not Resolved]
  - Gastrooesophageal reflux disease [Recovered/Resolved]
